FAERS Safety Report 9042983 (Version 1)
Quarter: 2013Q1

REPORT INFORMATION
  Report Type: Report from Study
  Country: US (occurrence: US)
  Receive Date: 20130129
  Receipt Date: 20130129
  Transmission Date: 20140127
  Serious: No
  Sender: FDA-Public Use
  Company Number: US-ABBOTT-12P-163-0910358-00

PATIENT
  Sex: Male
  Weight: 86.26 kg

DRUGS (8)
  1. HUMIRA 40 MG/0.8 ML PEN [Suspect]
     Indication: PSORIATIC ARTHROPATHY
     Dates: start: 201201
  2. CLONOPIN [Concomitant]
     Indication: ANXIETY
  3. REMERON [Concomitant]
     Indication: DEPRESSION
  4. ALLOPURINOL [Concomitant]
     Indication: GOUT
  5. ASPIRIN [Concomitant]
     Indication: BLOOD DISORDER
  6. LISINOPRIL [Concomitant]
     Indication: HYPERTENSION
  7. METHOCARBAMOL [Concomitant]
     Indication: PAIN
  8. UNNAMED PAIN KILLER [Concomitant]
     Indication: PAIN

REACTIONS (1)
  - Injection site pain [Not Recovered/Not Resolved]
